FAERS Safety Report 6869880-4 (Version None)
Quarter: 2010Q3

REPORT INFORMATION
  Report Type: 
  Country: None (occurrence: None)
  Receive Date: 20100721
  Receipt Date: 20100716
  Transmission Date: 20110219
  Serious: Yes (Hospitalization)
  Sender: FDA-Public Use
  Company Number: 102575-1

PATIENT
  Age: 61 Year
  Sex: Male
  Weight: 92 kg

DRUGS (1)
  1. LEUCOVORIN CALCIUM [Suspect]
     Dosage: 800MG (1ST REGIMEN) 640MG (2ND REGIMEN)

REACTIONS (3)
  - JOINT RANGE OF MOTION DECREASED [None]
  - TENDON RUPTURE [None]
  - TRIGGER FINGER [None]
